APPROVED DRUG PRODUCT: MOBIC
Active Ingredient: MELOXICAM
Strength: 15MG **Federal Register determination that product was not discontinued or withdrawn for safety or effectiveness reasons**
Dosage Form/Route: TABLET;ORAL
Application: N020938 | Product #002
Applicant: BOEHRINGER INGELHEIM PHARMACEUTICALS INC
Approved: Aug 23, 2000 | RLD: Yes | RS: No | Type: DISCN